FAERS Safety Report 6674342-3 (Version None)
Quarter: 2010Q2

REPORT INFORMATION
  Report Type: 
  Country: None (occurrence: None)
  Receive Date: 20100409
  Receipt Date: 20100406
  Transmission Date: 20101027
  Serious: Yes (Other)
  Sender: FDA-Public Use
  Company Number: CHPA2010US06316

PATIENT
  Age: 53 Year
  Sex: Male
  Weight: 79.819 kg

DRUGS (1)
  1. MAALOX TOTAL RELIEF (NCH) [Suspect]
     Indication: DIARRHOEA
     Dosage: 6 TSP, TID
     Route: 048
     Dates: start: 20100403

REACTIONS (2)
  - BLOOD GLUCOSE INCREASED [None]
  - CONCOMITANT DISEASE AGGRAVATED [None]
